FAERS Safety Report 5399310-3 (Version None)
Quarter: 2007Q3

REPORT INFORMATION
  Report Type: 
  Country: None (occurrence: None)
  Receive Date: 20070727
  Receipt Date: 20070722
  Transmission Date: 20080115
  Serious: Yes (Other)
  Sender: FDA-Public Use
  Company Number: US-ASTRAZENECA-2007UW17765

PATIENT
  Age: 61 Year
  Sex: Female
  Weight: 79.4 kg

DRUGS (6)
  1. ARIMIDEX [Suspect]
     Indication: BREAST CANCER
     Route: 048
     Dates: start: 20060109
  2. DICLOFENAC SODIUM [Concomitant]
  3. WELLBUTRIN XL [Concomitant]
  4. LUNESTA [Concomitant]
  5. MULTIVITAMIN [Concomitant]
  6. ORGANIC HERBALS [Concomitant]

REACTIONS (5)
  - C-REACTIVE PROTEIN INCREASED [None]
  - JOINT SWELLING [None]
  - OEDEMA PERIPHERAL [None]
  - PAIN [None]
  - PAIN IN EXTREMITY [None]
